FAERS Safety Report 21602036 (Version 1)
Quarter: 2022Q4

REPORT INFORMATION
  Report Type: Spontaneous
  Country: None (occurrence: IN)
  Receive Date: 20221116
  Receipt Date: 20221116
  Transmission Date: 20230112
  Serious: Yes (Other)
  Sender: FDA-Public Use
  Company Number: IN-Knight Therapeutics (USA) Inc.-2134949

PATIENT
  Sex: Female

DRUGS (1)
  1. IMPAVIDO [Suspect]
     Active Substance: MILTEFOSINE

REACTIONS (2)
  - Eye disorder [Recovered/Resolved]
  - Off label use [Unknown]
